FAERS Safety Report 4810001-7 (Version None)
Quarter: 2005Q4

REPORT INFORMATION
  Report Type: 
  Country: None (occurrence: None)
  Receive Date: 20051024
  Receipt Date: 20051024
  Transmission Date: 20060501
  Serious: No
  Sender: FDA-Public Use
  Company Number: None

PATIENT
  Age: 54 Year
  Sex: Male
  Weight: 78.5 kg

DRUGS (2)
  1. PRECEDEX [Suspect]
     Indication: SEDATION
     Dosage: 1 MCG/KG   BOLUS   IV BOLUS
     Route: 040
     Dates: start: 20051013, end: 20051013
  2. DILAUDID [Concomitant]

REACTIONS (1)
  - HYPOTENSION [None]
